FAERS Safety Report 8980776 (Version 1)
Quarter: 2012Q4

REPORT INFORMATION
  Report Type: Report from Study
  Country: GB (occurrence: CA)
  Receive Date: 20121221
  Receipt Date: 20121221
  Transmission Date: 20130627
  Serious: Yes (Hospitalization)
  Sender: FDA-Public Use
  Company Number: GB-PFIZER INC-2012314941

PATIENT
  Age: 47 Year
  Sex: Female
  Weight: 53 kg

DRUGS (3)
  1. DOCETAXEL [Suspect]
     Indication: BREAST CANCER
     Dosage: 115 mg, every 3 weeks (75mg/m2)
     Route: 042
     Dates: start: 20090213
  2. CARBOPLATIN [Suspect]
     Indication: BREAST CANCER
     Dosage: 750 mg, cyclic: every 3 weeks
     Route: 042
     Dates: start: 20090213
  3. TRASTUZUMAB [Suspect]
     Indication: HER-2 POSITIVE BREAST CANCER
     Dosage: 430 mg, every 3 weeks (8mg/kg)
     Route: 042
     Dates: start: 20090213

REACTIONS (1)
  - Cystitis [Recovered/Resolved]
